FAERS Safety Report 21521397 (Version 1)
Quarter: 2022Q4

REPORT INFORMATION
  Report Type: Report from Study
  Country: US (occurrence: US)
  Receive Date: 20221028
  Receipt Date: 20221028
  Transmission Date: 20230113
  Serious: Yes (Other)
  Sender: FDA-Public Use
  Company Number: US-BRISTOL-MYERS SQUIBB COMPANY-2022-121865

PATIENT
  Age: 59 Year
  Sex: Female
  Weight: 70.31 kg

DRUGS (14)
  1. REVLIMID [Suspect]
     Active Substance: LENALIDOMIDE
     Indication: Illness
     Route: 048
     Dates: start: 20220927
  2. ROSUVASTATIN CALCIUM [Concomitant]
     Active Substance: ROSUVASTATIN CALCIUM
  3. LISINOPRIL [Concomitant]
     Active Substance: LISINOPRIL
  4. LOSARTAN POTASSIUM [Concomitant]
     Active Substance: LOSARTAN POTASSIUM
  5. VITAMIN D NOS [Concomitant]
     Active Substance: VITAMIN D NOS
  6. VITAMINS NOS [Concomitant]
     Active Substance: VITAMINS
  7. DEXAMETHASONE [Concomitant]
     Active Substance: DEXAMETHASONE
  8. ACYCLOVIR [Concomitant]
     Active Substance: ACYCLOVIR
  9. LORAZEPAM [Concomitant]
     Active Substance: LORAZEPAM
  10. ASPIRIN [Concomitant]
     Active Substance: ASPIRIN
  11. MIRALAX [Concomitant]
     Active Substance: POLYETHYLENE GLYCOL 3350
  12. COLACE [Concomitant]
     Active Substance: DOCUSATE SODIUM
  13. VELCADE [Concomitant]
     Active Substance: BORTEZOMIB
  14. DARZALEX FASPRO [Concomitant]
     Active Substance: DARATUMUMAB\HYALURONIDASE-FIHJ

REACTIONS (5)
  - Uveitis [Unknown]
  - Tremor [Unknown]
  - Dysphonia [Unknown]
  - Weight increased [Unknown]
  - Constipation [Unknown]
